FAERS Safety Report 6743788-7 (Version None)
Quarter: 2010Q2

REPORT INFORMATION
  Report Type: 
  Country: None (occurrence: None)
  Receive Date: 20100527
  Receipt Date: 20100525
  Transmission Date: 20101027
  Serious: Yes (Death)
  Sender: FDA-Public Use
  Company Number: JP-ELI_LILLY_AND_COMPANY-JP201005006290

PATIENT
  Age: 66 Year
  Sex: Male
  Weight: 62 kg

DRUGS (9)
  1. PEMETREXED [Suspect]
     Indication: LUNG ADENOCARCINOMA STAGE IV
     Dosage: 900 MG, OTHER
     Route: 042
     Dates: start: 20090910, end: 20091119
  2. CISPLATIN [Concomitant]
     Indication: LUNG ADENOCARCINOMA STAGE IV
     Dosage: 135 MG, OTHER
     Route: 042
     Dates: start: 20090910, end: 20091119
  3. PANVITAN [Concomitant]
     Dosage: 1 G, DAILY (1/D)
     Route: 048
     Dates: start: 20090903, end: 20091201
  4. VITAMIN B-12 [Concomitant]
     Dosage: 1 MG, UNK
     Route: 030
     Dates: start: 20090903, end: 20090903
  5. SEROTONE [Concomitant]
     Dosage: UNK, OTHER
     Route: 042
     Dates: start: 20090910, end: 20091121
  6. DEXART [Concomitant]
     Dosage: UNK, OTHER
     Route: 042
     Dates: start: 20090910, end: 20091121
  7. RAMELTEON [Concomitant]
     Indication: VOMITING
     Route: 048
     Dates: start: 20090914, end: 20090917
  8. PRIMPERAN /00041901/ [Concomitant]
     Indication: PROPHYLAXIS
     Route: 048
     Dates: start: 20090914, end: 20091204
  9. GASTER D [Concomitant]
     Indication: PROPHYLAXIS
     Route: 048
     Dates: start: 20091021, end: 20091211

REACTIONS (2)
  - ACUTE RESPIRATORY DISTRESS SYNDROME [None]
  - INTERSTITIAL LUNG DISEASE [None]
